FAERS Safety Report 25640681 (Version 1)
Quarter: 2025Q3

REPORT INFORMATION
  Report Type: Spontaneous
  Country: US (occurrence: US)
  Receive Date: 20250804
  Receipt Date: 20250804
  Transmission Date: 20251021
  Serious: No
  Sender: TEVA
  Company Number: US-TEVA-VS-3353343

PATIENT
  Sex: Female

DRUGS (1)
  1. LORAZEPAM [Suspect]
     Active Substance: LORAZEPAM
     Indication: Anxiety
     Route: 048

REACTIONS (2)
  - Paranoia [Unknown]
  - Drug intolerance [Unknown]

NARRATIVE: CASE EVENT DATE: 20250101
